FAERS Safety Report 8060618-4 (Version None)
Quarter: 2012Q1

REPORT INFORMATION
  Report Type: 
  Country: None (occurrence: None)
  Receive Date: 20120120
  Receipt Date: 20120116
  Transmission Date: 20120608
  Serious: Yes (Other)
  Sender: FDA-Public Use
  Company Number: IE-JNJFOC-20110408752

PATIENT
  Sex: Female

DRUGS (16)
  1. CALCIUM CARBONATE [Concomitant]
  2. DELTACORTRIL [Concomitant]
  3. PARALIEF [Concomitant]
  4. SIMPONI [Suspect]
     Route: 058
     Dates: start: 20110216, end: 20110701
  5. METHOTREXATE [Concomitant]
     Dates: start: 20080101
  6. MAXITROL [Concomitant]
  7. NIZATIDINE [Concomitant]
  8. ACETAMINOPHEN [Concomitant]
  9. LEVOTHYROXINE SODIUM [Concomitant]
  10. CRESTOR [Concomitant]
  11. FOLIC ACID [Concomitant]
  12. SPASMONIL [Concomitant]
  13. NU-SEALS ASPIRIN [Concomitant]
  14. ATENOLOL [Concomitant]
  15. SIMPONI [Suspect]
     Indication: PSORIATIC ARTHROPATHY
     Route: 058
     Dates: start: 20110801, end: 20111027
  16. FRUMIL [Concomitant]

REACTIONS (7)
  - CYSTITIS [None]
  - INFLUENZA [None]
  - EYE DISORDER [None]
  - BLOOD COUNT ABNORMAL [None]
  - ASTHENIA [None]
  - ANGLE CLOSURE GLAUCOMA [None]
  - ALOPECIA [None]
